FAERS Safety Report 4635974-7 (Version None)
Quarter: 2005Q2

REPORT INFORMATION
  Report Type: 
  Country: None (occurrence: None)
  Receive Date: 20050415
  Receipt Date: 20050406
  Transmission Date: 20051028
  Serious: Yes (Death, Hospitalization)
  Sender: FDA-Public Use
  Company Number: US-BRISTOL-MYERS SQUIBB COMPANY-12924072

PATIENT
  Age: 54 Year
  Sex: Male
  Weight: 64 kg

DRUGS (2)
  1. CETUXIMAB [Suspect]
     Indication: PANCREATIC CARCINOMA
     Dosage: 437.5 MG TOTAL THIS COURSE.
     Route: 042
     Dates: start: 20050330, end: 20050330
  2. GEMCITABINE [Suspect]
     Indication: PANCREATIC CARCINOMA
     Dosage: 1750 MG TOTAL THIS COURSE.
     Route: 042
     Dates: start: 20050330, end: 20050330

REACTIONS (6)
  - DEHYDRATION [None]
  - FATIGUE [None]
  - HAEMOGLOBIN DECREASED [None]
  - MUSCULAR WEAKNESS [None]
  - MYOCARDIAL INFARCTION [None]
  - VENTRICULAR DYSFUNCTION [None]
